FAERS Safety Report 26000430 (Version 1)
Quarter: 2025Q4

REPORT INFORMATION
  Report Type: Spontaneous
  Country: US (occurrence: US)
  Receive Date: 20251105
  Receipt Date: 20251105
  Transmission Date: 20260117
  Serious: No
  Sender: ANI
  Company Number: US-ANIPHARMA-2025-US-038229

PATIENT
  Sex: Male

DRUGS (8)
  1. CORTICOTROPIN [Suspect]
     Active Substance: CORTICOTROPIN
     Indication: Gout
     Dosage: 80 UNITS TWICE WEEKLY
     Route: 058
  2. LOSARTAN POTASSIUM [Concomitant]
     Active Substance: LOSARTAN POTASSIUM
  3. ALLOPURINOL [Concomitant]
     Active Substance: ALLOPURINOL
  4. DEXAMETHASONE [Concomitant]
     Active Substance: DEXAMETHASONE
  5. MULTIVITAMIN MEN [Concomitant]
  6. FUROSEMIDE [Concomitant]
     Active Substance: FUROSEMIDE
  7. TRAMADOL HCL [Concomitant]
     Active Substance: TRAMADOL HYDROCHLORIDE
  8. COLCHICINE [Concomitant]
     Active Substance: COLCHICINE

REACTIONS (3)
  - Product dose omission issue [Unknown]
  - Asthenia [Unknown]
  - Pain [Unknown]
